APPROVED DRUG PRODUCT: GLYBURIDE (MICRONIZED)
Active Ingredient: GLYBURIDE
Strength: 1.5MG
Dosage Form/Route: TABLET;ORAL
Application: A074591 | Product #001
Applicant: STRIDES PHARMA INTERNATIONAL AG
Approved: Dec 22, 1997 | RLD: No | RS: No | Type: DISCN